FAERS Safety Report 13091780 (Version 1)
Quarter: 2017Q1

REPORT INFORMATION
  Report Type: Other
  Country: CA (occurrence: CA)
  Receive Date: 20170106
  Receipt Date: 20170106
  Transmission Date: 20170428
  Serious: Yes (Death, Other)
  Sender: FDA-Public Use
  Company Number: CA-APOTEX-2016AP016243

PATIENT
  Sex: Female

DRUGS (24)
  1. APO AMPI CAPSULES [Suspect]
     Active Substance: AMPICILLIN
     Indication: FOETAL EXPOSURE TIMING UNSPECIFIED
     Dosage: UNK
     Route: 064
  2. APO AMPI CAPSULES [Suspect]
     Active Substance: AMPICILLIN
     Indication: EVIDENCE BASED TREATMENT
     Dosage: 50 MG/KG, 1 EVERY 12 HOURS
     Route: 042
  3. SULFATRIM [Suspect]
     Active Substance: SULFAMETHOXAZOLE\TRIMETHOPRIM
     Indication: STENOTROPHOMONAS INFECTION
     Dosage: 1 MG/KG, Q.12H
     Route: 065
  4. SULFATRIM [Suspect]
     Active Substance: SULFAMETHOXAZOLE\TRIMETHOPRIM
     Indication: FOETAL EXPOSURE TIMING UNSPECIFIED
     Dosage: 3 MG/KG, UNK
     Route: 065
  5. SULFATRIM [Suspect]
     Active Substance: SULFAMETHOXAZOLE\TRIMETHOPRIM
     Dosage: 2.5 MG/KG, Q.6H
     Route: 048
  6. BETAMETHASONE. [Suspect]
     Active Substance: BETAMETHASONE
     Indication: FOETAL EXPOSURE TIMING UNSPECIFIED
     Dosage: UNK
     Route: 064
  7. GENTAMICIN. [Suspect]
     Active Substance: GENTAMICIN
     Indication: FOETAL EXPOSURE TIMING UNSPECIFIED
     Dosage: 5 MG/KG, 1 EVERY 48 HOURS
     Route: 065
  8. VANCOMYCIN [Suspect]
     Active Substance: VANCOMYCIN
     Indication: ANTIBIOTIC THERAPY
     Dosage: 15 MG, QD
     Route: 065
  9. APO-LEVOFLOXACIN [Suspect]
     Active Substance: LEVOFLOXACIN
     Indication: STENOTROPHOMONAS INFECTION
     Dosage: 1 MG/KG, UNK
     Route: 048
  10. SULFATRIM [Suspect]
     Active Substance: SULFAMETHOXAZOLE\TRIMETHOPRIM
     Dosage: 2 MG/M2, Q.6H
     Route: 048
  11. CEFOTAXIME [Suspect]
     Active Substance: CEFOTAXIME SODIUM
     Indication: EVIDENCE BASED TREATMENT
     Dosage: 50 MG/KG, Q.6H
     Route: 065
  12. CEFOTAXIME [Suspect]
     Active Substance: CEFOTAXIME SODIUM
     Indication: RENAL FAILURE
  13. GENTAMICIN. [Suspect]
     Active Substance: GENTAMICIN
     Indication: ANTIBIOTIC THERAPY
  14. MEROPENEM. [Suspect]
     Active Substance: MEROPENEM
     Indication: RESPIRATORY TRACT INFECTION
     Dosage: 20 MG/KG, Q.12H
     Route: 065
  15. CEFOTAXIME [Suspect]
     Active Substance: CEFOTAXIME SODIUM
     Indication: ANTIBIOTIC THERAPY
  16. GENTAMICIN. [Suspect]
     Active Substance: GENTAMICIN
     Indication: EVIDENCE BASED TREATMENT
  17. ERYTHRO-BASE [Suspect]
     Active Substance: ERYTHROMYCIN
     Indication: FOETAL EXPOSURE TIMING UNSPECIFIED
     Route: 064
  18. APO-LEVOFLOXACIN [Suspect]
     Active Substance: LEVOFLOXACIN
     Indication: EVIDENCE BASED TREATMENT
     Dosage: 10 MG/KG, UNK
     Route: 048
  19. SULFATRIM [Suspect]
     Active Substance: SULFAMETHOXAZOLE\TRIMETHOPRIM
     Dosage: 5 MG/M2, Q.6H
     Route: 048
  20. VANCOMYCIN [Suspect]
     Active Substance: VANCOMYCIN
     Indication: EVIDENCE BASED TREATMENT
  21. APO AMPI CAPSULES [Suspect]
     Active Substance: AMPICILLIN
     Indication: ANTIBIOTIC THERAPY
  22. CEFOTAXIME [Suspect]
     Active Substance: CEFOTAXIME SODIUM
     Indication: FOETAL EXPOSURE TIMING UNSPECIFIED
     Dosage: 50 MG/KG, Q.12H
     Route: 065
  23. MEROPENEM. [Suspect]
     Active Substance: MEROPENEM
     Indication: FOETAL EXPOSURE TIMING UNSPECIFIED
  24. VANCOMYCIN [Suspect]
     Active Substance: VANCOMYCIN
     Indication: FOETAL EXPOSURE TIMING UNSPECIFIED
     Dosage: 15 MG/KG, 1 EVERY 24 HOURS
     Route: 065

REACTIONS (13)
  - Stenotrophomonas infection [Fatal]
  - Pneumonia [Fatal]
  - Sepsis [Fatal]
  - Renal failure [Fatal]
  - Respiratory disorder [Fatal]
  - Lethargy [Fatal]
  - Hypotonia [Fatal]
  - Premature baby [Fatal]
  - Pneumonia bacterial [Fatal]
  - Umbilical erythema [Fatal]
  - Foetal exposure during pregnancy [Fatal]
  - Death neonatal [Fatal]
  - Exposure during pregnancy [Fatal]
